FAERS Safety Report 15721258 (Version 1)
Quarter: 2018Q4

REPORT INFORMATION
  Report Type: Spontaneous
  Country: NL (occurrence: NL)
  Receive Date: 20181214
  Receipt Date: 20181214
  Transmission Date: 20190205
  Serious: Yes (Hospitalization, Other)
  Sender: FDA-Public Use
  Company Number: NL-AUROBINDO-AUR-APL-2018-059949

PATIENT
  Age: 58 Year
  Sex: Female
  Weight: 60 kg

DRUGS (2)
  1. VENLAFAXINE PROLONGED RELEASED CAPSULES, HARD 150MG [Suspect]
     Active Substance: VENLAFAXINE HYDROCHLORIDE
     Indication: DEPRESSION
     Dosage: 1
     Route: 048
     Dates: start: 20170103
  2. SEROQUEL [Concomitant]
     Active Substance: QUETIAPINE FUMARATE
     Indication: HYPOMANIA
     Dosage: UNK
     Route: 065

REACTIONS (2)
  - Epilepsy [Recovered/Resolved]
  - Mania [Recovered/Resolved]

NARRATIVE: CASE EVENT DATE: 20170104
